FAERS Safety Report 21936929 (Version 1)
Quarter: 2023Q1

REPORT INFORMATION
  Report Type: Spontaneous
  Country: US (occurrence: None)
  Receive Date: 20230131
  Receipt Date: 20230131
  Transmission Date: 20230418
  Serious: Yes (Other)
  Sender: FDA-Public Use
  Company Number: None

PATIENT
  Age: 54 Year
  Sex: Female
  Weight: 76.5 kg

DRUGS (5)
  1. OZEMPIC [Suspect]
     Active Substance: SEMAGLUTIDE
     Indication: Diabetes mellitus
     Dosage: OTHER FREQUENCY : ONCE A WEEK SHOT;?
     Route: 058
  2. Atoravastin [Concomitant]
  3. TOPAMAX [Concomitant]
     Active Substance: TOPIRAMATE
  4. DULOXETINE [Concomitant]
     Active Substance: DULOXETINE
  5. GABAPENTIN [Concomitant]
     Active Substance: GABAPENTIN

REACTIONS (2)
  - Dysphonia [None]
  - Thyroid mass [None]

NARRATIVE: CASE EVENT DATE: 20221001
